FAERS Safety Report 8837041 (Version 1)
Quarter: 2012Q4

REPORT INFORMATION
  Report Type: 
  Country: US (occurrence: US)
  Receive Date: 20121011
  Receipt Date: 20121011
  Transmission Date: 20130627
  Serious: Yes (Other)
  Sender: FDA-Public Use
  Company Number: CHPA2012US020877

PATIENT
  Age: 73 Year
  Sex: Female

DRUGS (1)
  1. EXCEDRIN EXTRA STRENGTH [Suspect]
     Indication: HEADACHE
     Dosage: Unk, PRN
     Route: 048
     Dates: start: 1993

REACTIONS (3)
  - Diabetes mellitus [Not Recovered/Not Resolved]
  - Pain [Recovered/Resolved]
  - Arthropathy [Recovered/Resolved]
